FAERS Safety Report 12458776 (Version 1)
Quarter: 2016Q2

REPORT INFORMATION
  Report Type: Spontaneous
  Country: US (occurrence: US)
  Receive Date: 20160613
  Receipt Date: 20160613
  Transmission Date: 20160815
  Serious: Yes (Other)
  Sender: FDA-Public Use
  Company Number: US-TEVA-667741ACC

PATIENT
  Age: 21 Year
  Sex: Female
  Weight: 71.28 kg

DRUGS (1)
  1. TAKE ACTION [Suspect]
     Active Substance: LEVONORGESTREL
     Indication: POST COITAL CONTRACEPTION
     Dates: start: 201605, end: 201605

REACTIONS (4)
  - Menstruation delayed [Recovered/Resolved]
  - Menorrhagia [Recovered/Resolved]
  - Pneumonia [Unknown]
  - Intentional product use issue [Unknown]

NARRATIVE: CASE EVENT DATE: 201605
